FAERS Safety Report 6052846-4 (Version None)
Quarter: 2009Q1

REPORT INFORMATION
  Report Type: 
  Country: None (occurrence: None)
  Receive Date: 20090127
  Receipt Date: 20081107
  Transmission Date: 20090719
  Serious: Yes (Other)
  Sender: FDA-Public Use
  Company Number: US-BAYER-200837898NA

PATIENT
  Sex: Female

DRUGS (1)
  1. AVELOX [Suspect]
     Indication: DRUG USE FOR UNKNOWN INDICATION
     Dates: end: 20081023

REACTIONS (6)
  - ACNE [None]
  - CANDIDIASIS [None]
  - LIP BLISTER [None]
  - OEDEMA PERIPHERAL [None]
  - SWELLING FACE [None]
  - THROMBOSIS [None]
